FAERS Safety Report 7565015-3 (Version None)
Quarter: 2011Q2

REPORT INFORMATION
  Report Type: 
  Country: None (occurrence: None)
  Receive Date: 20110622
  Receipt Date: 20110502
  Transmission Date: 20111010
  Serious: Yes (Other)
  Sender: FDA-Public Use
  Company Number: US-MYLANLABS-2011S1006483

PATIENT
  Age: 55 Year
  Sex: Female
  Weight: 68.04 kg

DRUGS (1)
  1. CLOZAPINE [Suspect]
     Dates: start: 20110210, end: 20110301

REACTIONS (1)
  - LEUKOPENIA [None]
